FAERS Safety Report 8494855-1 (Version None)
Quarter: 2012Q3

REPORT INFORMATION
  Report Type: 
  Country: None (occurrence: None)
  Receive Date: 20120709
  Receipt Date: 20120702
  Transmission Date: 20120928
  Serious: Yes (Other)
  Sender: FDA-Public Use
  Company Number: FR-PFIZER INC-2012162274

PATIENT
  Sex: Female

DRUGS (4)
  1. XANAX [Suspect]
     Indication: DEPRESSION
     Dosage: 0.5 MG, 2X/DAY
     Route: 048
     Dates: start: 20111016
  2. XANAX [Suspect]
     Dosage: 60 MG, 1X/DAY
     Route: 048
     Dates: end: 20120609
  3. CYMBALTA [Suspect]
     Indication: DEPRESSION
     Dosage: 60 MG, UNK
     Route: 048
     Dates: start: 20111016, end: 20120609
  4. ACETAMINOPHEN [Suspect]
     Dosage: UNK

REACTIONS (3)
  - OVERDOSE [None]
  - DRUG ABUSE [None]
  - DRUG SCREEN POSITIVE [None]
